FAERS Safety Report 21394007 (Version 1)
Quarter: 2022Q3

REPORT INFORMATION
  Report Type: Spontaneous
  Country: US (occurrence: US)
  Receive Date: 20220930
  Receipt Date: 20220930
  Transmission Date: 20221027
  Serious: No
  Sender: FDA-Public Use
  Company Number: US-BRISTOL-MYERS SQUIBB COMPANY-2022-114089

PATIENT
  Age: 56 Year
  Sex: Male

DRUGS (3)
  1. POMALYST [Suspect]
     Active Substance: POMALIDOMIDE
     Indication: Plasma cell myeloma
     Dosage: FREQ: TAKE 1 CAPSULE BY MOUTH ON DAYS 1 TO 21 EVERY 28 DAYS.
     Route: 048
     Dates: start: 20211221
  2. ZOLEDRONIC [Concomitant]
     Active Substance: ZOLEDRONIC ACID
     Dosage: INJ 5/100ML
     Route: 065
  3. SEMGLEE [INSULIN GLARGINE] [Concomitant]
     Dosage: INJ 100U/ML

REACTIONS (2)
  - Constipation [Unknown]
  - Diarrhoea [Unknown]
